FAERS Safety Report 21874867 (Version 1)
Quarter: 2023Q1

REPORT INFORMATION
  Report Type: Spontaneous
  Country: US (occurrence: None)
  Receive Date: 20230117
  Receipt Date: 20230117
  Transmission Date: 20230418
  Serious: No
  Sender: FDA-Public Use
  Company Number: 2023A010439

PATIENT
  Age: 75 Year
  Sex: Female

DRUGS (1)
  1. PRILOSEC OTC [Suspect]
     Active Substance: OMEPRAZOLE MAGNESIUM
     Dosage: 1 TABLET, 1 /DAY
     Route: 048
     Dates: start: 20221117, end: 20221206

REACTIONS (3)
  - Genital rash [Recovering/Resolving]
  - Rash [Recovering/Resolving]
  - Incorrect product administration duration [Recovering/Resolving]

NARRATIVE: CASE EVENT DATE: 20221101
